FAERS Safety Report 6178829-1 (Version None)
Quarter: 2009Q2

REPORT INFORMATION
  Report Type: 
  Country: None (occurrence: None)
  Receive Date: 20090504
  Receipt Date: 20081023
  Transmission Date: 20091009
  Serious: No
  Sender: FDA-Public Use
  Company Number: FR-ALEXION-A200800307

PATIENT

DRUGS (11)
  1. SOLIRIS [Suspect]
     Indication: PAROXYSMAL NOCTURNAL HAEMOGLOBINURIA
     Dosage: UNK, UNK
     Route: 042
     Dates: start: 20070801
  2. ZELITREX /01269701/ [Concomitant]
     Indication: ORAL HERPES
     Dosage: 500 MG, BID
     Route: 048
  3. ORACILLINE /00001801/ [Concomitant]
     Indication: PROPHYLAXIS
     Dosage: 1 MIU, BID
     Route: 048
  4. SPECIAFOLDINE [Concomitant]
     Dosage: UNK, BID
     Route: 048
  5. NEORAL [Concomitant]
     Dosage: 120 MG, BID
  6. MOPRAL /00661201/ [Concomitant]
     Dosage: 20 MG, UNK
     Route: 048
  7. PREVISCAN /00261401/ [Concomitant]
     Indication: THROMBOSIS PROPHYLAXIS
     Route: 048
  8. CERAZETTE /00754001/ [Concomitant]
  9. LEXOMIL [Concomitant]
     Route: 048
  10. FLECAINE [Concomitant]
     Route: 048
  11. ISOCARD /00586302/ [Concomitant]
     Dosage: UNK, PRN

REACTIONS (1)
  - HYPERCHOLESTEROLAEMIA [None]
